FAERS Safety Report 7551166-6 (Version None)
Quarter: 2011Q2

REPORT INFORMATION
  Report Type: 
  Country: None (occurrence: None)
  Receive Date: 20110616
  Receipt Date: 20110602
  Transmission Date: 20111010
  Serious: Yes (Other)
  Sender: FDA-Public Use
  Company Number: PHHY2010BR88704

PATIENT
  Sex: Male

DRUGS (1)
  1. DIOVAN HCT [Suspect]
     Dosage: 320 MG OF VALSARTAN AND 2.5 MG OF HYDROCHLOROTHIAZIDE

REACTIONS (3)
  - RENAL DISORDER [None]
  - CEREBROVASCULAR ACCIDENT [None]
  - ISCHAEMIA [None]
